FAERS Safety Report 20813948 (Version 1)
Quarter: 2022Q2

REPORT INFORMATION
  Report Type: Spontaneous
  Country: CN (occurrence: CN)
  Receive Date: 20220511
  Receipt Date: 20220511
  Transmission Date: 20220721
  Serious: Yes (Other)
  Sender: FDA-Public Use
  Company Number: CN-ELI_LILLY_AND_COMPANY-CN202205000299

PATIENT
  Sex: Female

DRUGS (2)
  1. HUMULIN 70/30 [Suspect]
     Active Substance: INSULIN HUMAN
     Indication: Diabetes mellitus
     Dosage: 8 INTERNATIONAL UNIT, BID
     Route: 058
     Dates: start: 2004
  2. METFORMIN [Concomitant]
     Active Substance: METFORMIN HYDROCHLORIDE
     Indication: Product used for unknown indication

REACTIONS (12)
  - Retinal haemorrhage [Unknown]
  - Hepatitis B [Unknown]
  - Visual impairment [Unknown]
  - Renal disorder [Unknown]
  - Neuropathy peripheral [Unknown]
  - Back pain [Unknown]
  - Hypoaesthesia [Unknown]
  - Pain in extremity [Unknown]
  - Muscle spasms [Unknown]
  - Oedema peripheral [Unknown]
  - Drug ineffective [Unknown]
  - Blood glucose increased [Unknown]
